FAERS Safety Report 8850984 (Version 1)
Quarter: 2012Q4

REPORT INFORMATION
  Report Type: 
  Country: NL (occurrence: NL)
  Receive Date: 20121019
  Receipt Date: 20121019
  Transmission Date: 20130627
  Serious: Yes (Hospitalization)
  Sender: FDA-Public Use
  Company Number: PHHY2012NL093112

PATIENT
  Age: 73 Year
  Sex: Male

DRUGS (4)
  1. ZOMETA [Suspect]
     Indication: PROSTATE CANCER METASTATIC
     Dosage: 4 mg / 100ml once in 28 days (infusion in 18min)
  2. ZOMETA [Suspect]
     Dosage: 4 mg / 100ml once in 28 days (infusion in 18min)
     Dates: start: 20111209
  3. ZOMETA [Suspect]
     Dosage: 4 mg / 100ml once in 28 days (infusion in 18min)
     Dates: start: 20120919
  4. ZOMETA [Suspect]
     Dosage: 4 mg / 100ml once in 28 days (infusion in 18min)
     Dates: start: 20121017

REACTIONS (3)
  - Cerebral infarction [Not Recovered/Not Resolved]
  - Dysphagia [Not Recovered/Not Resolved]
  - Fatigue [Not Recovered/Not Resolved]
